FAERS Safety Report 19981681 (Version 1)
Quarter: 2021Q4

REPORT INFORMATION
  Report Type: Report from Study
  Country: US (occurrence: US)
  Receive Date: 20211022
  Receipt Date: 20211022
  Transmission Date: 20220303
  Serious: Yes (Death)
  Sender: FDA-Public Use
  Company Number: US-VIFOR PHARMA-VIT-2021-08292

PATIENT
  Sex: Female

DRUGS (1)
  1. VELPHORO [Suspect]
     Active Substance: SUCROFERRIC OXYHYDROXIDE
     Indication: End stage renal disease
     Dosage: TWO TABLETS OF 500 MG, THREE TIMES A DAY (TID)
     Route: 048

REACTIONS (1)
  - Death [Fatal]
